FAERS Safety Report 4521878-7 (Version None)
Quarter: 2004Q4

REPORT INFORMATION
  Report Type: 
  Country: None (occurrence: None)
  Receive Date: 20041207
  Receipt Date: 20041122
  Transmission Date: 20050328
  Serious: Yes (Death)
  Sender: FDA-Public Use
  Company Number: 0410026

PATIENT
  Sex: Male
  Weight: 0.4536 kg

DRUGS (1)
  1. ORFADIN [Suspect]
     Indication: TYROSINAEMIA
     Dosage: 2 MILLIGRAM TWICE DAILY, ORAL
     Route: 048
     Dates: start: 20041002, end: 20041105

REACTIONS (2)
  - HEPATIC FAILURE [None]
  - RENAL FAILURE [None]
